FAERS Safety Report 20457309 (Version 1)
Quarter: 2022Q1

REPORT INFORMATION
  Report Type: Spontaneous
  Country: DE (occurrence: DE)
  Receive Date: 20220210
  Receipt Date: 20220210
  Transmission Date: 20220424
  Serious: Yes (Disabling)
  Sender: FDA-Public Use
  Company Number: DE-DCGMA-22196293

PATIENT
  Age: 63 Year
  Sex: Female

DRUGS (11)
  1. ATEZOLIZUMAB [Suspect]
     Active Substance: ATEZOLIZUMAB
     Indication: Small cell lung cancer
     Route: 042
     Dates: start: 20200907, end: 20211223
  2. CHOLECALCIFEROL [Concomitant]
     Active Substance: CHOLECALCIFEROL
  3. RAMIPRIL [Concomitant]
     Active Substance: RAMIPRIL
  4. FOLIC ACID [Concomitant]
     Active Substance: FOLIC ACID
  5. LORAZEPAM [Concomitant]
     Active Substance: LORAZEPAM
  6. METOPROLOL [Concomitant]
     Active Substance: METOPROLOL
  7. HYDROCORTISONE [Concomitant]
     Active Substance: HYDROCORTISONE
  8. OXYCODONE [Concomitant]
     Active Substance: OXYCODONE
  9. ASPIRIN [Concomitant]
     Active Substance: ASPIRIN
  10. TRIMIPRAMINE [Concomitant]
     Active Substance: TRIMIPRAMINE
  11. PANTOPRAZOLE [Concomitant]
     Active Substance: PANTOPRAZOLE

REACTIONS (1)
  - Pancreatic atrophy [Unknown]
